FAERS Safety Report 10373938 (Version 1)
Quarter: 2014Q1

REPORT INFORMATION
  Report Type: Spontaneous
  Country: US (occurrence: None)
  Receive Date: 20140306
  Receipt Date: 20140306
  Transmission Date: 20141002
  Serious: Yes (Other)
  Sender: FDA-Public Use
  Company Number: 163-21880-13013513

PATIENT
  Age: 55 Year
  Sex: Female

DRUGS (7)
  1. REVLIMID [Suspect]
     Indication: PLASMA CELL MYELOMA
     Route: 048
     Dates: start: 20110210, end: 2011
  2. REVLIMID [Suspect]
     Indication: PLASMACYTOMA
     Route: 048
     Dates: start: 20110210, end: 2011
  3. ACYCLOVIR (ACICLOVIR) (UNKNOWN) [Concomitant]
  4. VELCADE (BORTEZOMIB) (INJECTION) [Concomitant]
  5. CYTOXAN (CYCLOPHOSPHAMIDE) (INJECTION) [Concomitant]
  6. ZOMETA (ZOLEDRONIC ACID) (INJECTION) [Concomitant]
  7. KYTRIL (GRANISETRON) (INHALANT) [Concomitant]

REACTIONS (2)
  - Pancytopenia [None]
  - Viral infection [None]
